FAERS Safety Report 5964605-9 (Version None)
Quarter: 2008Q4

REPORT INFORMATION
  Report Type: 
  Country: None (occurrence: None)
  Receive Date: 20081120
  Receipt Date: 20081105
  Transmission Date: 20090506
  Serious: Yes (Life-Threatening)
  Sender: FDA-Public Use
  Company Number: GXKR2008GB10574

PATIENT
  Age: 69 Year
  Sex: Male

DRUGS (13)
  1. CLARITHROMYCIN [Suspect]
     Indication: PNEUMONIA
     Dosage: G
  2. BENZYLPENICILLIN (NGX) (BENZYLPENICILLIN) UNKNOWN [Suspect]
     Indication: PNEUMONIA
     Dosage: 1.2 G, QID, INTRAVENOUS
     Route: 042
     Dates: start: 20081012, end: 20081021
  3. ENOXAPARIN SODIUM [Suspect]
     Indication: THROMBOSIS PROPHYLAXIS
     Dosage: 40 MG, QD, SUBCUTANEOUS
     Route: 058
     Dates: start: 20081012, end: 20081021
  4. METHOTREXATE [Suspect]
     Indication: RHEUMATOID ARTHRITIS
     Dosage: 20 MG, QW, ORAL
     Route: 048
     Dates: end: 20081017
  5. CALCICHEW D3 (CALCIUM CARBONAT4E, COLECALCIFEROL) [Concomitant]
  6. COZAAR [Concomitant]
  7. FERROUS SULPHATE (FERROUS SULFATE) [Concomitant]
  8. FOLIC ACID [Concomitant]
  9. FUROSEMIDE [Concomitant]
  10. LANZOPRAZOL (LLANSOPRAZOLE) [Concomitant]
  11. MELOXICAM [Concomitant]
  12. SIMVASTATIN [Concomitant]
  13. PREDNISOLONE [Concomitant]

REACTIONS (1)
  - THROMBOCYTOPENIA [None]
